FAERS Safety Report 6528809-9 (Version None)
Quarter: 2010Q1

REPORT INFORMATION
  Report Type: 
  Country: None (occurrence: None)
  Receive Date: 20100106
  Receipt Date: 20091228
  Transmission Date: 20100710
  Serious: Yes (Hospitalization)
  Sender: FDA-Public Use
  Company Number: TR-ELI_LILLY_AND_COMPANY-TR200912005857

PATIENT
  Age: 41 Year
  Sex: Female

DRUGS (3)
  1. HUMULIN R [Suspect]
     Indication: DIABETES MELLITUS
     Dosage: 46 IU, EACH EVENING
     Route: 058
     Dates: start: 20060101
  2. HUMULIN N [Suspect]
     Indication: DIABETES MELLITUS
     Dosage: 16 IU, DAILY (1/D)
     Route: 058
     Dates: start: 20090601
  3. GLIFOR [Concomitant]
     Indication: LIVER DISORDER
     Dosage: UNK, DAILY (1/D)
     Route: 048

REACTIONS (2)
  - BLOOD GLUCOSE INCREASED [None]
  - EYE DISORDER [None]
